FAERS Safety Report 5306201-2 (Version None)
Quarter: 2007Q1

REPORT INFORMATION
  Report Type: 
  Country: None (occurrence: None)
  Receive Date: 20070201
  Receipt Date: 20061113
  Transmission Date: 20070707
  Serious: No
  Sender: FDA-Public Use
  Company Number: 2006PV025186

PATIENT
  Age: 61 Year
  Sex: Female

DRUGS (5)
  1. BYETTA [Suspect]
     Indication: DIABETES MELLITUS NON-INSULIN-DEPENDENT
     Dosage: 5 MCG;BID;SC
     Route: 058
     Dates: start: 20060824
  2. METFORMIN HCL [Concomitant]
  3. CELEBREX [Concomitant]
  4. VICODIN [Concomitant]
  5. TRICOR [Concomitant]

REACTIONS (12)
  - ARTHRALGIA [None]
  - BLOOD CHOLESTEROL INCREASED [None]
  - BLOOD GLUCOSE DECREASED [None]
  - BLOOD GLUCOSE INCREASED [None]
  - DRY MOUTH [None]
  - GROIN PAIN [None]
  - HYPERHIDROSIS [None]
  - INSOMNIA [None]
  - NAUSEA [None]
  - PAIN IN EXTREMITY [None]
  - POLLAKIURIA [None]
  - TREMOR [None]
